FAERS Safety Report 6914723-3 (Version None)
Quarter: 2010Q3

REPORT INFORMATION
  Report Type: 
  Country: None (occurrence: None)
  Receive Date: 20100804
  Receipt Date: 20100729
  Transmission Date: 20110219
  Serious: Yes (Other)
  Sender: FDA-Public Use
  Company Number: US-1182785

PATIENT
  Age: 66 Year
  Sex: Male

DRUGS (4)
  1. DIFLUPREDNATE 0.05 % OPHTHALMIC EMULSION [Suspect]
     Indication: PROPHYLAXIS
     Dosage: (1GTT INTRAOPERATIVELY OPHTHALMIC), (TID IN THE AFTERNOON AND RIGHT OPHTHALMIC)
     Route: 047
     Dates: start: 20100622, end: 20100622
  2. DIFLUPREDNATE 0.05 % OPHTHALMIC EMULSION [Suspect]
     Indication: PROPHYLAXIS
     Dosage: (1GTT INTRAOPERATIVELY OPHTHALMIC), (TID IN THE AFTERNOON AND RIGHT OPHTHALMIC)
     Route: 047
     Dates: start: 20100622, end: 20100622
  3. VIGAMOX [Concomitant]
  4. GENTEAL [Concomitant]

REACTIONS (3)
  - DRUG INEFFECTIVE [None]
  - KERATITIS INTERSTITIAL [None]
  - VISUAL ACUITY REDUCED [None]
